FAERS Safety Report 8191318-8 (Version None)
Quarter: 2012Q1

REPORT INFORMATION
  Report Type: 
  Country: None (occurrence: None)
  Receive Date: 20120221
  Receipt Date: 20111205
  Transmission Date: 20120608
  Serious: No
  Sender: FDA-Public Use
  Company Number: 047100

PATIENT
  Age: 12 Year
  Sex: Female

DRUGS (1)
  1. LACOSAMIDE [Suspect]
     Dosage: (100 MG BID)

REACTIONS (3)
  - VISION BLURRED [None]
  - GAIT DISTURBANCE [None]
  - DIZZINESS [None]
